FAERS Safety Report 24238084 (Version 1)
Quarter: 2024Q3

REPORT INFORMATION
  Report Type: Spontaneous
  Country: US (occurrence: None)
  Receive Date: 20240821
  Receipt Date: 20240821
  Transmission Date: 20241017
  Serious: Yes (Death, Hospitalization)
  Sender: Public
  Company Number: None

PATIENT
  Age: 76 Year
  Sex: Male
  Weight: 80 kg

DRUGS (1)
  1. RENFLEXIS [Suspect]
     Active Substance: INFLIXIMAB-ABDA
     Indication: Crohn^s disease
     Dosage: OTHER FREQUENCY : 0,2,6 WEEKS;?
     Route: 042

REACTIONS (2)
  - Muscular weakness [None]
  - Histoplasmosis disseminated [None]

NARRATIVE: CASE EVENT DATE: 20240725
